FAERS Safety Report 13444676 (Version 1)
Quarter: 2017Q2

REPORT INFORMATION
  Report Type: Spontaneous
  Country: IT (occurrence: IT)
  Receive Date: 20170414
  Receipt Date: 20170414
  Transmission Date: 20170830
  Serious: Yes (Hospitalization)
  Sender: FDA-Public Use
  Company Number: IT-ELI_LILLY_AND_COMPANY-IT201704003425

PATIENT
  Age: 89 Year
  Sex: Female

DRUGS (2)
  1. TACHIPIRINA [Suspect]
     Active Substance: ACETAMINOPHEN
     Indication: FEMUR FRACTURE
     Dosage: UNK, UNKNOWN
     Route: 065
  2. FORSTEO [Suspect]
     Active Substance: TERIPARATIDE
     Indication: OSTEOPOROSIS
     Dosage: UNK, UNKNOWN
     Route: 065
     Dates: start: 201701

REACTIONS (3)
  - Fall [Unknown]
  - Urticaria [Unknown]
  - Femur fracture [Unknown]

NARRATIVE: CASE EVENT DATE: 201702
